FAERS Safety Report 7463600-0 (Version None)
Quarter: 2011Q2

REPORT INFORMATION
  Report Type: 
  Country: None (occurrence: None)
  Receive Date: 20110506
  Receipt Date: 20110427
  Transmission Date: 20111010
  Serious: Yes (Hospitalization, Other)
  Sender: FDA-Public Use
  Company Number: FR-PFIZER INC-2011091341

PATIENT
  Age: 46 Year
  Sex: Male

DRUGS (4)
  1. PANTOPRAZOLE [Suspect]
     Dosage: 20 MG, 1X/DAY
     Route: 048
     Dates: start: 20110204, end: 20110204
  2. KETOPROFEN [Suspect]
     Indication: BACK PAIN
     Dosage: 1 DF, 2X/DAY
     Route: 048
     Dates: start: 20110204, end: 20110205
  3. TRAMADOL HCL [Suspect]
     Indication: BACK PAIN
     Dosage: 300 MG, 1X/DAY
     Route: 048
     Dates: start: 20110204, end: 20110204
  4. LYRICA [Suspect]
     Indication: BACK PAIN
     Dosage: 75 MG, 2X/DAY
     Route: 048
     Dates: start: 20110204, end: 20110205

REACTIONS (3)
  - DYSPNOEA [None]
  - ANGIOEDEMA [None]
  - URTICARIA [None]
